FAERS Safety Report 19121162 (Version 1)
Quarter: 2021Q2

REPORT INFORMATION
  Report Type: Spontaneous
  Country: US (occurrence: US)
  Receive Date: 20210412
  Receipt Date: 20210412
  Transmission Date: 20210717
  Serious: Yes (Disabling)
  Sender: FDA-Public Use
  Company Number: None

PATIENT
  Age: 84 Year
  Sex: Female
  Weight: 63.5 kg

DRUGS (24)
  1. METRONIDAZOLE 500MG TABLETS SUBSTITUTED FOR FLAGYL 500MG TABLETS [Suspect]
     Active Substance: METRONIDAZOLE
     Indication: DIVERTICULITIS
     Dosage: ?          QUANTITY:1 DF DOSAGE FORM;?
     Route: 048
     Dates: start: 20201204, end: 20201207
  2. VITAMIN D [Concomitant]
     Active Substance: VITAMIN D NOS
  3. ATORVASTATIN [Concomitant]
     Active Substance: ATORVASTATIN
  4. FOLIC ACID. [Concomitant]
     Active Substance: FOLIC ACID
  5. IMODIUM A?D [Concomitant]
     Active Substance: LOPERAMIDE HYDROCHLORIDE
  6. ALBUTEROL INHALER [Concomitant]
     Active Substance: ALBUTEROL
  7. SYNTHROID [Concomitant]
     Active Substance: LEVOTHYROXINE SODIUM
  8. TRAZODONE [Concomitant]
     Active Substance: TRAZODONE HYDROCHLORIDE
  9. AMLODIPINE BESYLATE. [Concomitant]
     Active Substance: AMLODIPINE BESYLATE
  10. INCRUSE INHALER [Concomitant]
  11. ASPIRIN. [Concomitant]
     Active Substance: ASPIRIN
  12. MELATONIN [Concomitant]
     Active Substance: MELATONIN
  13. CALCIUM SUPPLEMENT [Concomitant]
     Active Substance: CALCIUM
  14. ESTRACE [Concomitant]
     Active Substance: ESTRADIOL
  15. IPRATROPIUM BROM. SPRAY [Concomitant]
  16. LATANOPROST EYE DROPS [Concomitant]
     Active Substance: LATANOPROST
  17. LYRICA [Concomitant]
     Active Substance: PREGABALIN
  18. PRAMIPXOLE [Concomitant]
  19. PREDNISONE. [Concomitant]
     Active Substance: PREDNISONE
  20. IRON SUPPLEMENT [Concomitant]
     Active Substance: IRON
  21. PREVACID [Concomitant]
     Active Substance: LANSOPRAZOLE
  22. LYRICA [Concomitant]
     Active Substance: PREGABALIN
  23. CLARITIN [Concomitant]
     Active Substance: LORATADINE
  24. PROBIOTIC [Concomitant]
     Active Substance: PROBIOTICS NOS

REACTIONS (16)
  - Skin indentation [None]
  - Gait disturbance [None]
  - Walking aid user [None]
  - Asthenia [None]
  - Poor quality sleep [None]
  - Pain in extremity [None]
  - Quality of life decreased [None]
  - Fluid retention [None]
  - Paraesthesia [None]
  - Neuropathy peripheral [None]
  - Hypoaesthesia [None]
  - Sleep deficit [None]
  - Bone pain [None]
  - Malaise [None]
  - Oedema peripheral [None]
  - Nerve injury [None]

NARRATIVE: CASE EVENT DATE: 20201215
